FAERS Safety Report 22834346 (Version 3)
Quarter: 2024Q1

REPORT INFORMATION
  Report Type: Spontaneous
  Country: US (occurrence: US)
  Receive Date: 20230817
  Receipt Date: 20240321
  Transmission Date: 20240410
  Serious: Yes (Hospitalization)
  Sender: FDA-Public Use
  Company Number: US-PFIZER INC-US-GBT-22-00690

PATIENT
  Age: 52 Year
  Sex: Male

DRUGS (3)
  1. OXBRYTA [Suspect]
     Active Substance: VOXELOTOR
     Indication: Sickle cell disease
     Dosage: 1500 MG, 1X/DAY
     Route: 048
     Dates: start: 20200506
  2. OXBRYTA [Suspect]
     Active Substance: VOXELOTOR
     Dosage: 1500 MG, 1X/DAY (3 TABLETS BY MOUTH ONCE DAILY)
     Route: 048
     Dates: end: 202308
  3. MORPHINE [Concomitant]
     Active Substance: MORPHINE
     Dosage: UNK

REACTIONS (1)
  - Sickle cell anaemia with crisis [Not Recovered/Not Resolved]

NARRATIVE: CASE EVENT DATE: 20220201
